FAERS Safety Report 8457062-4 (Version None)
Quarter: 2012Q2

REPORT INFORMATION
  Report Type: 
  Country: None (occurrence: None)
  Receive Date: 20120621
  Receipt Date: 20120529
  Transmission Date: 20120825
  Serious: No
  Sender: FDA-Public Use
  Company Number: US-ASTRAZENECA-2012SE35524

PATIENT
  Age: 59 Year
  Sex: Female

DRUGS (9)
  1. CITRACAL D [Concomitant]
  2. HUMULIN R [Concomitant]
  3. PRAVASTATIN [Concomitant]
  4. ATENOLOL [Suspect]
     Route: 048
  5. NEXIUM [Suspect]
     Route: 048
  6. LOSARTAN POTASSIUM [Concomitant]
  7. CALCIUM [Concomitant]
  8. PAROXETINE HCL [Concomitant]
  9. LEVOTHYROXINE [Concomitant]

REACTIONS (8)
  - LYMPHADENOPATHY [None]
  - OBESITY [None]
  - GASTROOESOPHAGEAL REFLUX DISEASE [None]
  - DIABETES MELLITUS [None]
  - HYPOTHYROIDISM [None]
  - RHINITIS ALLERGIC [None]
  - HYPERTENSION [None]
  - COUGH [None]
